FAERS Safety Report 12723714 (Version 1)
Quarter: 2016Q3

REPORT INFORMATION
  Report Type: Spontaneous
  Country: US (occurrence: US)
  Receive Date: 20160902
  Receipt Date: 20160902
  Transmission Date: 20161109
  Serious: Yes (Hospitalization)
  Sender: FDA-Public Use
  Company Number: None

PATIENT
  Age: 72 Year
  Sex: Male
  Weight: 120.4 kg

DRUGS (1)
  1. 5-FLUOROURACIL (5-FU) [Suspect]
     Active Substance: FLUOROURACIL
     Dates: end: 20160808

REACTIONS (8)
  - Gastroenteritis viral [None]
  - Asthenia [None]
  - Dehydration [None]
  - Syncope [None]
  - Orthostatic hypotension [None]
  - Fall [None]
  - Ankle fracture [None]
  - Therapy non-responder [None]

NARRATIVE: CASE EVENT DATE: 20160810
